FAERS Safety Report 18902989 (Version 1)
Quarter: 2021Q1

REPORT INFORMATION
  Report Type: Spontaneous
  Country: BE (occurrence: BE)
  Receive Date: 20210217
  Receipt Date: 20210217
  Transmission Date: 20210420
  Serious: Yes (Other)
  Sender: FDA-Public Use
  Company Number: BE-PFIZER INC-2021120659

PATIENT
  Sex: Female
  Weight: 55 kg

DRUGS (15)
  1. TEMESTA EXPIDET [Concomitant]
     Active Substance: LORAZEPAM
     Dosage: UNK (EXPIDET TAB 1MG 1 TABLET AT 8 PM)
     Route: 048
     Dates: start: 20201109
  2. PANTOPRAZOLE [Concomitant]
     Active Substance: PANTOPRAZOLE
     Dosage: UNK (TAB 40MG (SOBER) 1 TABLET AT 7AM ORALLY)
     Route: 048
     Dates: start: 20201112
  3. EUCERIN [Concomitant]
     Active Substance: ENSULIZOLE\EUCERIN\OCTINOXATE\OCTISALATE\TITANIUM DIOXIDE\ZINC OXIDE
     Dosage: UNK (1 DOSE AT 8 AM + 1 DOSE AT 8 PM, BODYLOTION F 200ML)
     Route: 003
     Dates: start: 20201029
  4. CARBOPLATIN. [Suspect]
     Active Substance: CARBOPLATIN
     Indication: OVARIAN CANCER
     Dosage: 260 MG, WEEKLY (STRENGTH:600MG/60ML)
     Route: 042
     Dates: start: 20201103, end: 20201231
  5. OXYNORM [Concomitant]
     Active Substance: OXYCODONE HYDROCHLORIDE
     Indication: PAIN
     Dosage: UNK (INSTANT ORODISP TABLET 10MG AS NEEDED (PAIN) MAXIMUM 6 X 1 TABLET ORALLY)
     Route: 048
     Dates: start: 20201030
  6. BUSCOPAN [Concomitant]
     Active Substance: BUTYLSCOPOLAMINE BROMIDE
     Indication: ABDOMINAL PAIN
     Dosage: UNK (TAB 10MG AS NEEDED (ABDOMINAL PAIN) MAXIMUM 4 X 1 DRAGEE)
     Route: 048
     Dates: start: 20201112
  7. ASAFLOW [Concomitant]
     Active Substance: ASPIRIN
     Dosage: UNK (TAB 80MG 1 TABLET AT 8 AM ORALLY )
     Route: 048
     Dates: start: 20201029
  8. D?CURE [Concomitant]
     Active Substance: CHOLECALCIFEROL
     Dosage: UNK (AMP OR 1 AMPOULE EVERY 1 WEEK)
     Route: 048
     Dates: start: 20201005
  9. FOLAVIT [Concomitant]
     Active Substance: FOLIC ACID
     Dosage: UNK (TAB 4MG 1 TABLET AT 8 AM)
     Route: 048
     Dates: start: 20201030
  10. MEDROL [Concomitant]
     Active Substance: METHYLPREDNISOLONE
     Dosage: UNK (32MG 1 TABLET AT 8AM)
     Route: 048
     Dates: start: 20201112
  11. MATRIFEN [Concomitant]
     Active Substance: FENTANYL
     Dosage: UNK (50MCG/U 1 PIECE EVERY 3 DAYS)
     Route: 003
     Dates: start: 20201109
  12. CETIRIZINE [Concomitant]
     Active Substance: CETIRIZINE HYDROCHLORIDE
     Dosage: UNK (TAB 10MG AS NEEDED (FOR RASH/ITCH) MAXIMUM 3 X 1 TABLET )
     Route: 048
     Dates: start: 20201022
  13. MOMETASONE [Concomitant]
     Active Substance: MOMETASONE
     Dosage: UNK (50MCG/DOS 140DOS 1 VIAL AT 8 AM + 1 VIAL AT 12 PM + 1 VIAL AT 5 PM  )
  14. LITICAN [ALIZAPRIDE] [Concomitant]
     Dosage: UNK (TAB 50MG 1 TABLET AT 8AM + 1 TABLET AT 12PM + 1 TABLET AT 4PM + 1 TABLET AT 8PM)
  15. PACLITAXEL. [Concomitant]
     Active Substance: PACLITAXEL
     Indication: OVARIAN CANCER
     Dosage: 139.5 MG, WEEKLY
     Route: 042
     Dates: start: 20201103

REACTIONS (3)
  - Erythema [Recovered/Resolved]
  - Dyspnoea [Recovered/Resolved]
  - Wheezing [Recovered/Resolved]

NARRATIVE: CASE EVENT DATE: 20201231
